FAERS Safety Report 6654635-6 (Version None)
Quarter: 2010Q1

REPORT INFORMATION
  Report Type: 
  Country: None (occurrence: None)
  Receive Date: 20100326
  Receipt Date: 20091102
  Transmission Date: 20100710
  Serious: Yes (Hospitalization)
  Sender: FDA-Public Use
  Company Number: PHHY2009TW61002

PATIENT

DRUGS (1)
  1. EXJADE [Suspect]
     Dosage: 11 TABLETS
     Route: 048

REACTIONS (2)
  - ABDOMINAL PAIN UPPER [None]
  - BONE MARROW TRANSPLANT [None]
